FAERS Safety Report 10511764 (Version 4)
Quarter: 2015Q1

REPORT INFORMATION
  Report Type: Spontaneous
  Country: JP (occurrence: JP)
  Receive Date: 20141010
  Receipt Date: 20150128
  Transmission Date: 20150720
  Serious: Yes (Hospitalization)
  Sender: FDA-Public Use
  Company Number: JP-ASTELLAS-2014JP020681

PATIENT
  Age: 70 Year
  Sex: Male

DRUGS (12)
  1. BAYASPIRIN [Concomitant]
     Active Substance: ASPIRIN
     Indication: PRODUCT USED FOR UNKNOWN INDICATION
     Dosage: UNK UNK, UNKNOWN FREQ.
     Route: 048
  2. OXYCONTIN [Concomitant]
     Active Substance: OXYCODONE HYDROCHLORIDE
     Indication: CANCER PAIN
     Route: 048
     Dates: start: 20140803, end: 20140804
  3. XTANDI [Suspect]
     Active Substance: ENZALUTAMIDE
     Indication: PROSTATE CANCER
     Route: 048
     Dates: start: 20140602, end: 20140823
  4. FAMOTIDINE. [Concomitant]
     Active Substance: FAMOTIDINE
     Indication: DUODENAL ULCER
     Route: 048
     Dates: start: 20140804, end: 20140823
  5. RANMARK [Concomitant]
     Active Substance: DENOSUMAB
     Indication: PRODUCT USED FOR UNKNOWN INDICATION
     Dosage: UNK UNK, UNKNOWN FREQ.
     Route: 065
  6. TAKEPRON [Concomitant]
     Active Substance: LANSOPRAZOLE
     Indication: DUODENAL ULCER
     Route: 048
     Dates: start: 20140903
  7. GASTER [Concomitant]
     Active Substance: FAMOTIDINE
     Indication: DUODENAL ULCER
     Route: 048
     Dates: start: 20140602, end: 20140803
  8. FENTOS [Concomitant]
     Active Substance: FENTANYL
     Indication: CANCER PAIN
     Route: 061
     Dates: start: 20140823, end: 20140917
  9. PREDONINE [Suspect]
     Active Substance: PREDNISOLONE\PREDNISOLONE ACETATE\PREDNISOLONE SODIUM SUCCINATE
     Indication: PROSTATE CANCER
     Route: 048
     Dates: start: 20140804, end: 20140823
  10. CALCIUM COMPOUNDS [Concomitant]
     Indication: PROPHYLAXIS
     Route: 048
     Dates: start: 20140130
  11. OXYCONTIN [Concomitant]
     Active Substance: OXYCODONE HYDROCHLORIDE
     Route: 048
     Dates: start: 20140805, end: 20140822
  12. FENTOS [Concomitant]
     Active Substance: FENTANYL
     Route: 061
     Dates: start: 20140918

REACTIONS (3)
  - Duodenal ulcer [Recovering/Resolving]
  - Decreased appetite [Recovering/Resolving]
  - Vomiting [Recovering/Resolving]

NARRATIVE: CASE EVENT DATE: 20140821
